FAERS Safety Report 8036576-5 (Version None)
Quarter: 2012Q1

REPORT INFORMATION
  Report Type: 
  Country: None (occurrence: None)
  Receive Date: 20120109
  Receipt Date: 20111223
  Transmission Date: 20120608
  Serious: Yes (Other)
  Sender: FDA-Public Use
  Company Number: 2010-0673

PATIENT
  Age: 50 Year
  Sex: Female
  Weight: 82 kg

DRUGS (4)
  1. LEVOTHYROXINE SODIUM [Concomitant]
  2. SOMATULINE DEPOT [Suspect]
     Indication: ACROMEGALY
     Dosage: 30MG (30 MG,1 IN 14 D),INTRAMUSCULAR
     Route: 030
     Dates: start: 19990909
  3. SOMAVERT [Concomitant]
  4. HYDROCORTONE [Concomitant]

REACTIONS (3)
  - NEEDLE ISSUE [None]
  - INJECTION SITE PAIN [None]
  - INJECTION SITE HAEMATOMA [None]
